FAERS Safety Report 14950939 (Version 1)
Quarter: 2018Q2

REPORT INFORMATION
  Report Type: Spontaneous
  Country: DE (occurrence: DE)
  Receive Date: 20180530
  Receipt Date: 20180530
  Transmission Date: 20180711
  Serious: Yes (Hospitalization)
  Sender: FDA-Public Use
  Company Number: DE-DEXPHARM-20180360

PATIENT
  Age: 38 Year
  Sex: Male

DRUGS (6)
  1. BISOPROLOL [Concomitant]
     Active Substance: BISOPROLOL
     Dosage: 5MG, 1-0-0-0
  2. OMEPRAZOLE. [Suspect]
     Active Substance: OMEPRAZOLE
     Dosage: NK MG, NK
  3. CICLOSPORIN [Suspect]
     Active Substance: CYCLOSPORINE
     Dosage: 125MG, 1-0-1-0
  4. ATORVASTATIN [Suspect]
     Active Substance: ATORVASTATIN
     Dosage: NK MG, NK
  5. CANDESARTAN CILEXETIL AND HYDROCHLOROTHIAZIDE [Concomitant]
     Active Substance: CANDESARTAN CILEXETIL\HYDROCHLOROTHIAZIDE
     Dosage: 16/12.5MG 1-0-0-0
  6. TAMSULOSIN [Concomitant]
     Active Substance: TAMSULOSIN
     Dosage: 0.4MG, 1-0-0-0

REACTIONS (5)
  - Abdominal pain [Unknown]
  - Acute kidney injury [Unknown]
  - Chest pain [Unknown]
  - Labelled drug-drug interaction medication error [Unknown]
  - Drug prescribing error [Unknown]
